FAERS Safety Report 12665115 (Version 2)
Quarter: 2016Q3

REPORT INFORMATION
  Report Type: Spontaneous
  Country: JP (occurrence: JP)
  Receive Date: 20160818
  Receipt Date: 20160825
  Transmission Date: 20161109
  Serious: Yes (Hospitalization)
  Sender: FDA-Public Use
  Company Number: JP-BAYER-2016-159994

PATIENT
  Age: 75 Year
  Sex: Male

DRUGS (2)
  1. CLOPIDOGREL [Interacting]
     Active Substance: CLOPIDOGREL BISULFATE
     Dosage: 75 MG, DAILY DOSE
     Route: 048
  2. ACETYLSALICYLIC ACID({=100 MG) [Suspect]
     Active Substance: ASPIRIN
     Indication: ANTIPLATELET THERAPY
     Dosage: 100 MG, DAILY DOSE
     Route: 048

REACTIONS (7)
  - Oropharyngeal swelling [Recovering/Resolving]
  - Labelled drug-drug interaction medication error [None]
  - Drug administration error [None]
  - Jaw fracture [None]
  - Contusion [None]
  - Tongue haemorrhage [None]
  - Fall [None]
